FAERS Safety Report 8524223-5 (Version None)
Quarter: 2012Q3

REPORT INFORMATION
  Report Type: 
  Country: None (occurrence: None)
  Receive Date: 20120716
  Receipt Date: 20120716
  Transmission Date: 20120928
  Serious: No
  Sender: FDA-Public Use
  Company Number: None

PATIENT
  Sex: Female
  Weight: 96.1626 kg

DRUGS (1)
  1. LAMICTAL [Suspect]
     Indication: BIPOLAR DISORDER
     Dosage: 400MG  ONCE A DAY PO
     Route: 048

REACTIONS (23)
  - CONTUSION [None]
  - ASTHENIA [None]
  - MYALGIA [None]
  - AGGRESSION [None]
  - SLEEP DISORDER [None]
  - NAUSEA [None]
  - AMNESIA [None]
  - BREAST NEOPLASM [None]
  - HEADACHE [None]
  - DEPRESSION [None]
  - PANIC ATTACK [None]
  - AGITATION [None]
  - SYNCOPE [None]
  - STOMATITIS [None]
  - SUICIDAL IDEATION [None]
  - FATIGUE [None]
  - ANXIETY [None]
  - RESTLESSNESS [None]
  - INSOMNIA [None]
  - IRRITABILITY [None]
  - HYPOTHYROIDISM [None]
  - PERSONALITY CHANGE [None]
  - CELLULITIS [None]
